FAERS Safety Report 5411793-9 (Version None)
Quarter: 2007Q3

REPORT INFORMATION
  Report Type: 
  Country: None (occurrence: None)
  Receive Date: 20070813
  Receipt Date: 20070803
  Transmission Date: 20080115
  Serious: Yes (Other)
  Sender: FDA-Public Use
  Company Number: PHBS2007BR13075

PATIENT
  Age: 17 Year
  Sex: Female
  Weight: 78 kg

DRUGS (1)
  1. RITALIN [Suspect]
     Indication: LEARNING DISORDER
     Dosage: 10 MG, UNK

REACTIONS (4)
  - ASTHENIA [None]
  - FEELING ABNORMAL [None]
  - HYPOAESTHESIA [None]
  - TREMOR [None]
